FAERS Safety Report 4321834-8 (Version None)
Quarter: 2004Q1

REPORT INFORMATION
  Report Type: 
  Country: None (occurrence: None)
  Receive Date: 20040322
  Receipt Date: 20040322
  Transmission Date: 20041129
  Serious: Yes (Life-Threatening, Disabling, Other)
  Sender: FDA-Public Use
  Company Number: None

PATIENT
  Age: 57 Year
  Sex: Male
  Weight: 104.3273 kg

DRUGS (2)
  1. DURAGESIC [Suspect]
     Dosage: 100 MG/H 72 HR PATCH TRANSDERMAL
     Route: 062
     Dates: start: 20020115, end: 20031217
  2. VICODIN [Suspect]
     Dosage: APAP 10/500 6 TIMES+ ORAL
     Route: 048
     Dates: start: 20020115, end: 20031217

REACTIONS (4)
  - DRUG WITHDRAWAL SYNDROME [None]
  - HAEMATOCHEZIA [None]
  - PAIN [None]
  - PERSONALITY DISORDER [None]
